FAERS Safety Report 4952682-3 (Version None)
Quarter: 2006Q1

REPORT INFORMATION
  Report Type: 
  Country: None (occurrence: None)
  Receive Date: 20060324
  Receipt Date: 20060310
  Transmission Date: 20060701
  Serious: Yes (Death)
  Sender: FDA-Public Use
  Company Number: US-NOVOPROD-251562

PATIENT
  Sex: Female

DRUGS (2)
  1. NOVOSEVEN [Suspect]
     Indication: OPERATIVE HAEMORRHAGE
     Dosage: UNKNOWN
  2. AMICAR [Concomitant]
     Indication: HAEMORRHAGE
     Dosage: UNKNOWN

REACTIONS (1)
  - THROMBOSIS [None]
